FAERS Safety Report 5794315-2 (Version None)
Quarter: 2008Q2

REPORT INFORMATION
  Report Type: 
  Country: None (occurrence: None)
  Receive Date: 20080627
  Receipt Date: 20080625
  Transmission Date: 20081010
  Serious: Yes (Hospitalization)
  Sender: FDA-Public Use
  Company Number: IE-BRISTOL-MYERS SQUIBB COMPANY-14181853

PATIENT
  Age: 70 Year
  Sex: Female

DRUGS (4)
  1. DASATINIB [Suspect]
     Indication: CHRONIC MYELOID LEUKAEMIA
     Dosage: INTERRUPTED ON 06MAY08 RESTARTED ON 10-MAY-2008
     Route: 048
     Dates: start: 20051122
  2. FRUMIL [Suspect]
     Dosage: 40MG INTERUPTED AND 20MG STARTED ON 20MAY08.
     Dates: start: 20080219, end: 20080505
  3. CARDICOR [Concomitant]
     Dates: start: 20061003
  4. CAPOZIDE [Concomitant]
     Dates: start: 20060129, end: 20080506

REACTIONS (1)
  - HYPONATRAEMIA [None]
